FAERS Safety Report 7497828 (Version 4)
Quarter: 2013Q1

REPORT INFORMATION
  Report Type: Spontaneous
  Country: US (occurrence: US)
  Receive Date: 20100723
  Receipt Date: 20130123
  Transmission Date: 20140127
  Serious: Yes (Hospitalization)
  Sender: FDA-Public Use
  Company Number: US-BIOGENIDEC-2010BI024169

PATIENT
  Age: 53 Year
  Sex: Male

DRUGS (1)
  1. AVONEX [Suspect]
     Indication: MULTIPLE SCLEROSIS
     Route: 030
     Dates: start: 19990416

REACTIONS (9)
  - Local swelling [Not Recovered/Not Resolved]
  - Abasia [Not Recovered/Not Resolved]
  - Sepsis [Not Recovered/Not Resolved]
  - Injection site cellulitis [Recovered/Resolved]
  - Constipation [Recovered/Resolved]
  - Nephrolithiasis [Unknown]
  - Influenza [Recovered/Resolved]
  - Somnolence [Recovered/Resolved]
  - Pyrexia [Unknown]
